FAERS Safety Report 8555709-5 (Version None)
Quarter: 2012Q3

REPORT INFORMATION
  Report Type: 
  Country: None (occurrence: None)
  Receive Date: 20120801
  Receipt Date: 20120723
  Transmission Date: 20120928
  Serious: No
  Sender: FDA-Public Use
  Company Number: US-009507513-1207USA009901

PATIENT

DRUGS (5)
  1. PLAVIX [Concomitant]
     Dosage: 75 MG, QD
  2. METOPROLOL TARTRATE [Concomitant]
     Dosage: 25 MG, QD
  3. ZOCOR [Suspect]
     Dosage: 80 MG, QD
     Route: 048
  4. LIPITOR [Suspect]
     Dosage: 40 MG, QD
  5. UBIDECARENONE [Suspect]

REACTIONS (2)
  - ARTHRALGIA [None]
  - DRUG INEFFECTIVE [None]
